FAERS Safety Report 12467874 (Version 4)
Quarter: 2016Q3

REPORT INFORMATION
  Report Type: Spontaneous
  Country: US (occurrence: US)
  Receive Date: 20160615
  Receipt Date: 20160808
  Transmission Date: 20161109
  Serious: Yes (Other)
  Sender: FDA-Public Use
  Company Number: US-UNITED THERAPEUTICS-UNT-2016-007250

PATIENT
  Age: 55 Year
  Sex: Male
  Weight: 77.69 kg

DRUGS (3)
  1. REMODULIN [Suspect]
     Active Substance: TREPROSTINIL
     Indication: PULMONARY HYPERTENSION
     Dosage: 0.029 ?G/KG, CONTINUING
     Route: 058
     Dates: start: 20160209, end: 2016
  2. REMODULIN [Suspect]
     Active Substance: TREPROSTINIL
     Dosage: 0.02 ?G/KG, CONTINUING
     Route: 058
  3. REMODULIN [Suspect]
     Active Substance: TREPROSTINIL
     Dosage: 0.015 ?G/KG, CONTINUING
     Route: 058

REACTIONS (21)
  - Amnesia [Not Recovered/Not Resolved]
  - Decreased appetite [Unknown]
  - Dysgeusia [Not Recovered/Not Resolved]
  - Abdominal distension [Unknown]
  - Fall [Unknown]
  - Infusion site oedema [Unknown]
  - Hepatic pain [Unknown]
  - Infusion site pain [Unknown]
  - Rash [Unknown]
  - Nausea [Unknown]
  - Trismus [Not Recovered/Not Resolved]
  - Hepatic cirrhosis [Unknown]
  - Oesophageal disorder [Not Recovered/Not Resolved]
  - Weight decreased [Not Recovered/Not Resolved]
  - Pain [Unknown]
  - Infusion site infection [Unknown]
  - Oedema [Unknown]
  - Infusion site warmth [Unknown]
  - Infusion site pruritus [Unknown]
  - Diarrhoea [Unknown]
  - Infusion site erythema [Unknown]

NARRATIVE: CASE EVENT DATE: 2016
